FAERS Safety Report 22930555 (Version 2)
Quarter: 2024Q3

REPORT INFORMATION
  Report Type: Report from Study
  Country: HN (occurrence: HN)
  Receive Date: 20230911
  Receipt Date: 20240819
  Transmission Date: 20241016
  Serious: Yes (Other)
  Sender: MYLAN
  Company Number: HN-MYLANLABS-2023M1096242

PATIENT
  Age: 67 Year
  Sex: Male

DRUGS (2)
  1. LIPITOR [Suspect]
     Active Substance: ATORVASTATIN CALCIUM
     Indication: Arteriosclerosis
     Dosage: 80 MILLIGRAM, QD, (ONE TABLET DAILY)
     Route: 048
     Dates: start: 202212
  2. LIPITOR [Suspect]
     Active Substance: ATORVASTATIN CALCIUM
     Dosage: UNK
     Route: 065
     Dates: start: 2022

REACTIONS (5)
  - Infarction [Not Recovered/Not Resolved]
  - Stent placement [Not Recovered/Not Resolved]
  - Feeling abnormal [Not Recovered/Not Resolved]
  - Diabetic neuropathy [Not Recovered/Not Resolved]
  - Asthenia [Not Recovered/Not Resolved]

NARRATIVE: CASE EVENT DATE: 20230701
